FAERS Safety Report 9014221 (Version 3)
Quarter: 2014Q3

REPORT INFORMATION
  Report Type: Spontaneous
  Country: US (occurrence: US)
  Receive Date: 20130115
  Receipt Date: 20140801
  Transmission Date: 20150326
  Serious: Yes (Hospitalization, Other)
  Sender: FDA-Public Use
  Company Number: US-009507513-1301USA005273

PATIENT
  Sex: Female
  Weight: 90.7 kg

DRUGS (2)
  1. NUVARING [Suspect]
     Active Substance: ETHINYL ESTRADIOL\ETONOGESTREL
     Indication: CONTRACEPTION
     Dosage: UNK
     Route: 067
     Dates: start: 200402, end: 200410
  2. NUVARING [Suspect]
     Active Substance: ETHINYL ESTRADIOL\ETONOGESTREL
     Indication: MENSTRUATION IRREGULAR

REACTIONS (9)
  - Oropharyngeal pain [Unknown]
  - Off label use [Unknown]
  - Coagulopathy [Unknown]
  - Loop electrosurgical excision procedure [Unknown]
  - Maternal exposure before pregnancy [Recovered/Resolved]
  - Papilloma viral infection [Unknown]
  - Chest pain [Unknown]
  - Hypercoagulation [Unknown]
  - Pulmonary embolism [Recovered/Resolved]

NARRATIVE: CASE EVENT DATE: 200410
